FAERS Safety Report 21943477 (Version 6)
Quarter: 2023Q4

REPORT INFORMATION
  Report Type: Spontaneous
  Country: JP (occurrence: JP)
  Receive Date: 20230202
  Receipt Date: 20231103
  Transmission Date: 20240109
  Serious: Yes (Hospitalization, Other)
  Sender: FDA-Public Use
  Company Number: JP-ABBVIE-22K-087-4475955-00

PATIENT
  Age: 41 Year
  Sex: Male

DRUGS (2)
  1. HUMIRA [Suspect]
     Active Substance: ADALIMUMAB
     Indication: Hidradenitis
     Route: 058
     Dates: start: 201707
  2. HUMIRA [Suspect]
     Active Substance: ADALIMUMAB
     Indication: Hidradenitis
     Dosage: FORM STRENGTH: 80 MILLIGRAM
     Route: 058
     Dates: start: 20190709

REACTIONS (9)
  - Amyloidosis [Unknown]
  - Hidradenitis [Unknown]
  - Therapeutic product effect incomplete [Unknown]
  - Infection [Unknown]
  - Pulmonary embolism [Recovering/Resolving]
  - Skin disorder [Unknown]
  - Ileus [Unknown]
  - COVID-19 [Unknown]
  - Shunt occlusion [Unknown]

NARRATIVE: CASE EVENT DATE: 20220901
